FAERS Safety Report 16445153 (Version 6)
Quarter: 2024Q3

REPORT INFORMATION
  Report Type: Spontaneous
  Country: US (occurrence: US)
  Receive Date: 20190618
  Receipt Date: 20240808
  Transmission Date: 20241016
  Serious: Yes (Other)
  Sender: PFIZER
  Company Number: US-PFIZER INC-2019254201

PATIENT
  Age: 9 Year
  Sex: Female

DRUGS (5)
  1. FLUCONAZOLE [Interacting]
     Active Substance: FLUCONAZOLE
     Indication: Antifungal treatment
     Dosage: UNK
  2. FLUTICASONE [Interacting]
     Active Substance: FLUTICASONE
     Indication: Prophylaxis
     Dosage: 220 UG, 2X/DAY
     Route: 055
  3. FLUTICASONE [Interacting]
     Active Substance: FLUTICASONE
     Dosage: 110 UG, 1X/DAY
     Route: 055
  4. HYDROCORTISONE [Interacting]
     Active Substance: HYDROCORTISONE\HYDROCORTISONE ACETATE
     Dosage: UNK, DAILY (APPROXIMATELY 9MG/M2/DAY, INHALED)
  5. POSACONAZOLE [Interacting]
     Active Substance: POSACONAZOLE
     Dosage: 200 MG, 1X/DAY

REACTIONS (5)
  - Drug interaction [Recovered/Resolved]
  - Adrenal insufficiency [Recovered/Resolved]
  - Growth failure [Recovered/Resolved]
  - Bone density decreased [Recovered/Resolved]
  - Cushingoid [Recovered/Resolved]
